FAERS Safety Report 10191330 (Version 1)
Quarter: 2014Q2

REPORT INFORMATION
  Report Type: Spontaneous
  Country: IT (occurrence: IT)
  Receive Date: 20140523
  Receipt Date: 20140523
  Transmission Date: 20141212
  Serious: Yes (Death)
  Sender: FDA-Public Use
  Company Number: IT-CELGENEUS-083-50794-14052506

PATIENT
  Sex: 0

DRUGS (1)
  1. VIDAZA [Suspect]
     Route: 065
     Dates: start: 2010, end: 2012

REACTIONS (1)
  - Acute myeloid leukaemia [Fatal]
